FAERS Safety Report 22278130 (Version 1)
Quarter: 2023Q2

REPORT INFORMATION
  Report Type: Report from Study
  Country: GB (occurrence: GB)
  Receive Date: 20230503
  Receipt Date: 20230503
  Transmission Date: 20230721
  Serious: Yes (Other)
  Sender: FDA-Public Use
  Company Number: GB-SAMSUNG BIOEPIS-SB-2023-02103

PATIENT
  Age: 31 Year
  Sex: Female

DRUGS (1)
  1. IMRALDI [Suspect]
     Active Substance: ADALIMUMAB
     Indication: Ankylosing spondylitis
     Dosage: STRENGTH:40MG/0.8ML;
     Route: 058
     Dates: start: 20230104

REACTIONS (8)
  - Angioedema [Unknown]
  - Skin exfoliation [Recovering/Resolving]
  - Pain in extremity [Unknown]
  - Peripheral swelling [Unknown]
  - Nail bed disorder [Unknown]
  - Dry skin [Unknown]
  - Rash [Unknown]
  - Oral herpes [Unknown]
